FAERS Safety Report 26107308 (Version 1)
Quarter: 2025Q4

REPORT INFORMATION
  Report Type: Spontaneous
  Country: US (occurrence: None)
  Receive Date: 20251127
  Receipt Date: 20251127
  Transmission Date: 20260117
  Serious: Yes (Life-Threatening, Hospitalization, Disabling)
  Sender: FDA-CTU
  Company Number: None

PATIENT
  Age: 76 Year
  Sex: Female
  Weight: 72 kg

DRUGS (7)
  1. ACETAMINOPHEN\HYDROCODONE [Suspect]
     Active Substance: ACETAMINOPHEN\HYDROCODONE
     Indication: Pain
     Dosage: OTHER QUANTITY : 1 TABLET(S);?FREQUENCY : EVERY 6 HOURS;?
     Route: 048
     Dates: start: 20250331, end: 20250402
  2. insulin, 2-3 units per day fast acting (3x daily if needed) [Concomitant]
  3. Metformin 1,000mg 2x daily [Concomitant]
  4. ARGININE [Concomitant]
     Active Substance: ARGININE
  5. CITRULLINE [Concomitant]
     Active Substance: CITRULLINE
  6. Magnesium Complex 2x daily [Concomitant]
  7. VITAMIN D3 [Concomitant]
     Active Substance: CHOLECALCIFEROL

REACTIONS (7)
  - Renal disorder [None]
  - Blood sodium decreased [None]
  - Anuria [None]
  - Constipation [None]
  - Confusional state [None]
  - Palpitations [None]
  - Muscle spasms [None]

NARRATIVE: CASE EVENT DATE: 20250402
